FAERS Safety Report 6760841-2 (Version None)
Quarter: 2010Q2

REPORT INFORMATION
  Report Type: 
  Country: None (occurrence: None)
  Receive Date: 20100604
  Receipt Date: 20100520
  Transmission Date: 20101027
  Serious: Yes (Other)
  Sender: FDA-Public Use
  Company Number: 2010-00555

PATIENT
  Age: 80 Year
  Sex: Female

DRUGS (4)
  1. LEVETIRACETAM [Suspect]
     Indication: CONVULSION
     Dosage: 1000 MG (2 IN 1 D) ORAL
     Route: 048
  2. AMIODARONE (UNKNOWN) [Suspect]
     Indication: ATRIAL FIBRILLATION
     Dosage: 400 MG (2 IN 1 D) ORAL
     Route: 048
  3. PREGABALIN (UNKNOWN) [Concomitant]
  4. LEVOTHYROXINE (UNKNOWN) [Concomitant]

REACTIONS (4)
  - ATRIAL FIBRILLATION [None]
  - CONFUSIONAL STATE [None]
  - DELIRIUM [None]
  - PARANOIA [None]
